FAERS Safety Report 9827427 (Version 2)
Quarter: 2014Q1

REPORT INFORMATION
  Report Type: Spontaneous
  Country: US (occurrence: US)
  Receive Date: 20140117
  Receipt Date: 20140124
  Transmission Date: 20141002
  Serious: Yes (Other)
  Sender: FDA-Public Use
  Company Number: US-DYAX CORP.-2014DX000003

PATIENT
  Age: 21 Year
  Sex: Female
  Weight: 59.02 kg

DRUGS (3)
  1. KALBITOR [Suspect]
     Indication: HEREDITARY ANGIOEDEMA
     Route: 058
     Dates: start: 20140107, end: 20140107
  2. KALBITOR [Suspect]
     Route: 058
     Dates: start: 20131216, end: 20131216
  3. KALBITOR [Suspect]
     Route: 058
     Dates: start: 20130617, end: 20140107

REACTIONS (1)
  - Anaphylactic reaction [Recovering/Resolving]
